FAERS Safety Report 7312191-3 (Version None)
Quarter: 2011Q1

REPORT INFORMATION
  Report Type: 
  Country: None (occurrence: None)
  Receive Date: 20110224
  Receipt Date: 20110214
  Transmission Date: 20110831
  Serious: Yes (Hospitalization)
  Sender: FDA-Public Use
  Company Number: A0892625A

PATIENT
  Age: 51 Year
  Sex: Female

DRUGS (1)
  1. AVANDIA [Suspect]
     Indication: DIABETES MELLITUS
     Dosage: 4MG PER DAY
     Route: 048
     Dates: start: 20030624, end: 20040317

REACTIONS (4)
  - BACK PAIN [None]
  - CEREBROVASCULAR ACCIDENT [None]
  - MUSCULOSKELETAL PAIN [None]
  - NECK PAIN [None]
